FAERS Safety Report 4710714-1 (Version None)
Quarter: 2005Q3

REPORT INFORMATION
  Report Type: 
  Country: None (occurrence: None)
  Receive Date: 20050711
  Receipt Date: 20050629
  Transmission Date: 20060218
  Serious: Yes (Hospitalization)
  Sender: FDA-Public Use
  Company Number: PHBS2005SE09512

PATIENT
  Age: 66 Year
  Sex: Female

DRUGS (3)
  1. ESIDRIX [Suspect]
     Indication: HYPERTENSION
     Dosage: 12.5 MG/DAY
     Route: 048
  2. TIOTROPIUM BROMIDE [Concomitant]
  3. BUDESONIDE W/FORMOTEROL FUMARATE [Concomitant]

REACTIONS (7)
  - ASTHENIA [None]
  - CEREBRAL DISORDER [None]
  - DEPRESSED LEVEL OF CONSCIOUSNESS [None]
  - ENCEPHALOPATHY [None]
  - HYPONATRAEMIA [None]
  - INAPPROPRIATE ANTIDIURETIC HORMONE SECRETION [None]
  - SWELLING [None]
